FAERS Safety Report 4839085-7 (Version None)
Quarter: 2005Q4

REPORT INFORMATION
  Report Type: 
  Country: None (occurrence: None)
  Receive Date: 20051129
  Receipt Date: 20051117
  Transmission Date: 20060501
  Serious: Yes (Hospitalization)
  Sender: FDA-Public Use
  Company Number: US-GLAXOSMITHKLINE-A0582746A

PATIENT
  Age: 75 Year
  Sex: Male

DRUGS (2)
  1. AVODART [Suspect]
     Indication: DRUG USE FOR UNKNOWN INDICATION
     Dosage: .5MG PER DAY
     Route: 048
     Dates: end: 20051101
  2. NO CONCURRENT MEDICATION [Concomitant]

REACTIONS (5)
  - BREAST MASS [None]
  - BREAST TENDERNESS [None]
  - CHEST DISCOMFORT [None]
  - HYPERTENSION [None]
  - NEOPLASM PROSTATE [None]
